FAERS Safety Report 5064442-6 (Version None)
Quarter: 2006Q3

REPORT INFORMATION
  Report Type: 
  Country: None (occurrence: None)
  Receive Date: 20060726
  Receipt Date: 20060710
  Transmission Date: 20061208
  Serious: Yes (Other)
  Sender: FDA-Public Use
  Company Number: 2006PV017246

PATIENT
  Age: 59 Year
  Sex: Female

DRUGS (6)
  1. SYMLIN [Suspect]
     Indication: DIABETES MELLITUS NON-INSULIN-DEPENDENT
     Dosage: 120 MCG; SC
     Route: 058
     Dates: start: 20060606, end: 20060708
  2. SYMLIN [Suspect]
  3. ALLEGRA [Concomitant]
  4. SYNTHROID [Concomitant]
  5. PANTOPRAZOLE SODIUM [Concomitant]
  6. DEMEDEX [Concomitant]

REACTIONS (3)
  - INJECTION SITE ERYTHEMA [None]
  - OEDEMA PERIPHERAL [None]
  - URTICARIA [None]
